FAERS Safety Report 4289133-0 (Version None)
Quarter: 2004Q1

REPORT INFORMATION
  Report Type: 
  Country: None (occurrence: None)
  Receive Date: 20040210
  Receipt Date: 19931021
  Transmission Date: 20041129
  Serious: Yes (Life-Threatening, Hospitalization, Disabling, Other)
  Sender: FDA-Public Use
  Company Number: USA/93/04173/PLO

PATIENT
  Age: 22 Year
  Sex: Female
  Weight: 61 kg

DRUGS (2)
  1. PARLODEL [Suspect]
     Indication: SUPPRESSED LACTATION
     Route: 048
     Dates: start: 19931015, end: 19931020
  2. ANEXSIA [Concomitant]

REACTIONS (19)
  - ACUTE MYOCARDIAL INFARCTION [None]
  - ANOXIC ENCEPHALOPATHY [None]
  - APALLIC SYNDROME [None]
  - BRAIN DAMAGE [None]
  - BRAIN OEDEMA [None]
  - CARDIAC ARREST [None]
  - CARDIAC ENZYMES INCREASED [None]
  - CARDIOMEGALY [None]
  - COMA [None]
  - CONVULSION [None]
  - HEADACHE [None]
  - HEPATITIS [None]
  - HYPOXIC ENCEPHALOPATHY [None]
  - LIVER FUNCTION TEST ABNORMAL [None]
  - MUSCLE RIGIDITY [None]
  - MYOCARDIAL INFARCTION [None]
  - PYREXIA [None]
  - RESUSCITATION [None]
  - VENTRICULAR FIBRILLATION [None]
